FAERS Safety Report 8164695-1 (Version None)
Quarter: 2012Q1

REPORT INFORMATION
  Report Type: 
  Country: None (occurrence: None)
  Receive Date: 20120227
  Receipt Date: 20120221
  Transmission Date: 20120608
  Serious: No
  Sender: FDA-Public Use
  Company Number: US-BIOGENIDEC-2011BI034209

PATIENT
  Sex: Female

DRUGS (16)
  1. CYMBALTA [Concomitant]
     Route: 048
  2. TRAZODONE HCL [Concomitant]
     Route: 048
  3. METHYLPHENIDATE [Concomitant]
     Indication: FATIGUE
     Route: 048
  4. LUNESTA [Concomitant]
     Route: 048
  5. SEROQUEL [Concomitant]
     Route: 048
  6. IBUPROFEN [Concomitant]
     Indication: HEADACHE
  7. HYDROCODONE BITARTRATE [Concomitant]
     Indication: HEADACHE
     Route: 048
  8. HYDROCODONE BITARTRATE [Concomitant]
     Indication: PAIN
     Route: 048
  9. NITROFURANTOIN MACROCRYSTAL [Concomitant]
     Route: 048
  10. TEMAZEPAM [Concomitant]
     Route: 048
  11. ACETAMINOPHEN [Concomitant]
     Route: 048
  12. SEROQUEL [Concomitant]
     Route: 048
  13. TYSABRI [Suspect]
     Indication: MULTIPLE SCLEROSIS
     Route: 042
     Dates: start: 20080806, end: 20110805
  14. TYSABRI [Suspect]
     Route: 042
     Dates: start: 20111027
  15. ACETAMINOPHEN [Concomitant]
     Indication: PAIN
     Route: 048
  16. TIZANIDINE HCL [Concomitant]
     Route: 048

REACTIONS (15)
  - PAIN [None]
  - COORDINATION ABNORMAL [None]
  - RADICULITIS [None]
  - MULTIPLE SCLEROSIS RELAPSE [None]
  - BALANCE DISORDER [None]
  - MUSCULOSKELETAL PAIN [None]
  - MULTIPLE SCLEROSIS [None]
  - DEPRESSION [None]
  - BLOOD GLUCOSE INCREASED [None]
  - MEMORY IMPAIRMENT [None]
  - NECK PAIN [None]
  - GAIT DISTURBANCE [None]
  - WEIGHT DECREASED [None]
  - MUSCLE SPASMS [None]
  - NUCLEAR MAGNETIC RESONANCE IMAGING ABNORMAL [None]
